FAERS Safety Report 7782638-7 (Version None)
Quarter: 2011Q3

REPORT INFORMATION
  Report Type: 
  Country: None (occurrence: None)
  Receive Date: 20110928
  Receipt Date: 20110920
  Transmission Date: 20111222
  Serious: Yes (Hospitalization, Other)
  Sender: FDA-Public Use
  Company Number: CZ-AMGEN-CZESP2011047459

PATIENT
  Age: 64 Year
  Sex: Female

DRUGS (2)
  1. CALCIUM CARBONATE [Concomitant]
     Indication: OSTEOPOROSIS POSTMENOPAUSAL
     Dosage: UNK UNK, BID
     Route: 048
  2. PROLIA [Suspect]
     Indication: OSTEOPOROSIS POSTMENOPAUSAL
     Dosage: 60 MG, UNK
     Route: 058
     Dates: start: 20110818

REACTIONS (8)
  - VOMITING [None]
  - MALAISE [None]
  - DIZZINESS [None]
  - HYPERSENSITIVITY [None]
  - OEDEMA PERIPHERAL [None]
  - VESTIBULAR DISORDER [None]
  - FACE OEDEMA [None]
  - BONE PAIN [None]
